FAERS Safety Report 9528880 (Version 1)
Quarter: 2013Q1

REPORT INFORMATION
  Report Type: Spontaneous
  Country: US (occurrence: None)
  Receive Date: 20130322
  Receipt Date: 20130322
  Transmission Date: 20140127
  Serious: Yes (Hospitalization)
  Sender: FDA-Public Use
  Company Number: PHEH2012US021721

PATIENT
  Age: 44 Year
  Sex: Male

DRUGS (8)
  1. NEORAL [Suspect]
  2. GENGRAF [Suspect]
  3. AZATHIOPRINE (AZATHIOPRINE) [Concomitant]
  4. KEPRA (LEVTIRACETAM) [Concomitant]
  5. PHENOBARBITOL (PHENOBARBITOL) [Concomitant]
  6. NORVASC (AMLODIPINE BESILATE) [Concomitant]
  7. PREDNISONE (PREDNISONE) [Concomitant]
  8. HYDROCODONE (HYDROCODONE) [Concomitant]

REACTIONS (2)
  - Neoplasm [None]
  - Convulsion [None]
